FAERS Safety Report 17971508 (Version 1)
Quarter: 2020Q3

REPORT INFORMATION
  Report Type: Spontaneous
  Country: US (occurrence: US)
  Receive Date: 20200701
  Receipt Date: 20200701
  Transmission Date: 20201103
  Serious: No
  Sender: FDA-Public Use
  Company Number: US-009507513-2006USA011022

PATIENT
  Sex: Female

DRUGS (1)
  1. MOMETASONE FUROATE (WARRICK) [Suspect]
     Active Substance: MOMETASONE FUROATE
     Indication: ECZEMA
     Dosage: ^JUST A DAB^
     Route: 061

REACTIONS (1)
  - Drug ineffective [Unknown]
